FAERS Safety Report 17408529 (Version 1)
Quarter: 2020Q1

REPORT INFORMATION
  Report Type: Spontaneous
  Country: JP (occurrence: JP)
  Receive Date: 20200212
  Receipt Date: 20200212
  Transmission Date: 20200409
  Serious: Yes (Hospitalization)
  Sender: FDA-Public Use
  Company Number: JP-PFIZER INC-2020050845

PATIENT
  Age: 75 Year
  Sex: Female

DRUGS (6)
  1. CRIZOTINIB [Suspect]
     Active Substance: CRIZOTINIB
     Indication: LUNG ADENOCARCINOMA STAGE IV
     Dosage: 750 MG, DAILY (THIRD-LINE THERAPY)
     Dates: start: 201312
  2. BEVACIZUMAB. [Concomitant]
     Active Substance: BEVACIZUMAB
     Dosage: 15 MG/KG, CYCLIC (ON DAY 1 EVERY 3 WEEKS FOR SIX CYCLES)
  3. PEMETREXED. [Concomitant]
     Active Substance: PEMETREXED
     Dosage: 500 MG/M2, CYCLIC (DAY 1 EVERY 3 WEEKS FOR SIX CYCLES)
     Dates: start: 2011
  4. BEVACIZUMAB. [Concomitant]
     Active Substance: BEVACIZUMAB
     Indication: LUNG ADENOCARCINOMA STAGE IV
     Dosage: 15 MG/KG, CYCLIC (DAY 1 EVERY 3 WEEKS FOR FIVE CYCLES)
     Dates: start: 2010
  5. CISPLATIN. [Concomitant]
     Active Substance: CISPLATIN
     Indication: LUNG ADENOCARCINOMA STAGE IV
     Dosage: 75 MG/M2, CYCLIC (DAY 1 EVERY 3 WEEKS FOR FIVE CYCLES)
     Dates: start: 2010
  6. PEMETREXED. [Concomitant]
     Active Substance: PEMETREXED
     Indication: LUNG ADENOCARCINOMA STAGE IV
     Dosage: 500 MG/M2, CYCLIC (DAY 1 EVERY 3 WEEKS FOR FIVE CYCLES)
     Dates: start: 2010

REACTIONS (1)
  - Rapidly progressive osteoarthritis [Recovered/Resolved]

NARRATIVE: CASE EVENT DATE: 201804
